FAERS Safety Report 16731787 (Version 1)
Quarter: 2019Q3

REPORT INFORMATION
  Report Type: Spontaneous
  Country: BG (occurrence: BG)
  Receive Date: 20190822
  Receipt Date: 20190822
  Transmission Date: 20191005
  Serious: Yes (Life-Threatening, Other)
  Sender: FDA-Public Use
  Company Number: BG-JNJFOC-20190816856

PATIENT
  Age: 40 Year
  Sex: Male

DRUGS (1)
  1. RISPOLEPT [Suspect]
     Active Substance: RISPERIDONE
     Indication: SCHIZOPHRENIA
     Route: 065
     Dates: start: 20030306, end: 20080531

REACTIONS (4)
  - Emotional disorder [Unknown]
  - Cognitive disorder [Recovered/Resolved]
  - Physical disability [Recovered/Resolved]
  - Suicide attempt [Recovered/Resolved]
